FAERS Safety Report 20937333 (Version 2)
Quarter: 2022Q2

REPORT INFORMATION
  Report Type: Spontaneous
  Country: DE (occurrence: DE)
  Receive Date: 20220609
  Receipt Date: 20220610
  Transmission Date: 20220721
  Serious: Yes (Death, Hospitalization)
  Sender: FDA-Public Use
  Company Number: DE-STADA-249822

PATIENT
  Age: 71 Year
  Sex: Male

DRUGS (13)
  1. CEFTRIAXONE [Suspect]
     Active Substance: CEFTRIAXONE
     Indication: Product used for unknown indication
     Dosage: 2 GRAM, ONCE A DAY
     Route: 065
     Dates: start: 2021
  2. LINEZOLID [Suspect]
     Active Substance: LINEZOLID
     Indication: Paraneoplastic pemphigus
     Dosage: UNK
     Route: 065
     Dates: start: 202110
  3. LINEZOLID [Suspect]
     Active Substance: LINEZOLID
     Indication: Autoimmune disorder
  4. MEROPENEM [Suspect]
     Active Substance: MEROPENEM
     Indication: Paraneoplastic pemphigus
     Dosage: UNK
     Route: 065
     Dates: start: 202110
  5. MEROPENEM [Suspect]
     Active Substance: MEROPENEM
     Indication: Autoimmune disorder
  6. PIPERACILLIN AND TAZOBACTAM [Suspect]
     Active Substance: PIPERACILLIN SODIUM\TAZOBACTAM SODIUM
     Indication: Paraneoplastic pemphigus
     Dosage: 4.5 GRAM, FOUR TIMES/DAY
     Route: 065
     Dates: start: 2021
  7. GANCICLOVIR [Suspect]
     Active Substance: GANCICLOVIR
     Indication: Paraneoplastic pemphigus
     Dosage: UNK
     Route: 065
     Dates: start: 2021
  8. VORICONAZOLE [Suspect]
     Active Substance: VORICONAZOLE
     Indication: Paraneoplastic pemphigus
     Dosage: UNK
     Route: 065
     Dates: start: 202110
  9. VORICONAZOLE [Suspect]
     Active Substance: VORICONAZOLE
     Indication: Autoimmune disorder
  10. BENDAMUSTINE [Concomitant]
     Active Substance: BENDAMUSTINE
     Indication: Follicular lymphoma stage IV
     Dosage: 125 MILLIGRAM (ON DAY 1 AND 2)
     Route: 065
     Dates: start: 202109
  11. OBINUTUZUMAB [Concomitant]
     Active Substance: OBINUTUZUMAB
     Indication: Follicular lymphoma stage IV
     Dosage: 100 MILLIGRAM, ONCE A DAY
     Route: 065
     Dates: start: 202109
  12. OBINUTUZUMAB [Concomitant]
     Active Substance: OBINUTUZUMAB
     Dosage: 1000 MILLIGRAM (SECOND ADMINISTRATION)
     Route: 065
  13. PREDNISOLONE [Concomitant]
     Active Substance: PREDNISOLONE
     Indication: Paraneoplastic pemphigus
     Dosage: 500 MILLIGRAM, ONCE A DAY (HIGH DOSE)
     Route: 042
     Dates: start: 2021

REACTIONS (3)
  - Drug ineffective [Fatal]
  - Condition aggravated [Unknown]
  - Off label use [Unknown]
